FAERS Safety Report 5518779-4 (Version None)
Quarter: 2007Q4

REPORT INFORMATION
  Report Type: 
  Country: None (occurrence: None)
  Receive Date: 20071113
  Receipt Date: 20071025
  Transmission Date: 20080405
  Serious: Yes (Death)
  Sender: FDA-Public Use
  Company Number: 2007BM000157

PATIENT
  Age: 69 Year
  Sex: Male

DRUGS (2)
  1. PREDNISONE [Suspect]
     Indication: HENOCH-SCHONLEIN PURPURA
     Dosage: 30 MG;QD;PO
     Route: 048
     Dates: start: 20050101
  2. PREDNISONE [Suspect]
     Dosage: 100 MG;QD;IV
     Route: 042
     Dates: start: 20050101

REACTIONS (14)
  - ABDOMINAL PAIN [None]
  - CARDIO-RESPIRATORY ARREST [None]
  - DYSPNOEA [None]
  - GASTROINTESTINAL DISORDER [None]
  - HAEMOGLOBIN DECREASED [None]
  - HAEMOPTYSIS [None]
  - HYPOXIA [None]
  - LUNG INFILTRATION [None]
  - PULMONARY CONGESTION [None]
  - PULMONARY HAEMORRHAGE [None]
  - PULMONARY OEDEMA [None]
  - SWELLING [None]
  - VOMITING [None]
  - WHITE BLOOD CELL COUNT INCREASED [None]
